FAERS Safety Report 9768582 (Version 2)
Quarter: 2013Q4

REPORT INFORMATION
  Report Type: Spontaneous
  Country: DK (occurrence: DK)
  Receive Date: 20131218
  Receipt Date: 20131218
  Transmission Date: 20140711
  Serious: Yes (Hospitalization, Disabling)
  Sender: FDA-Public Use
  Company Number: DK-GE HEALTHCARE MEDICAL DIAGNOSTICS-OSCN-NO-0909S-0422

PATIENT
  Age: 64 Year
  Sex: Male
  Weight: 79 kg

DRUGS (21)
  1. OMNISCAN [Suspect]
     Indication: PERIPHERAL ARTERIAL OCCLUSIVE DISEASE
     Route: 042
     Dates: start: 20010607, end: 20010607
  2. GADOBUTROL [Suspect]
     Indication: PRODUCT USED FOR UNKNOWN INDICATION
     Route: 042
     Dates: start: 20080221, end: 20080221
  3. ERYTHROPOIETIN (NEORECORMON) [Concomitant]
  4. CALCIUM ACETATE (PHOS-EX) [Concomitant]
  5. SACCHARATED IRON OXIDE (VENOFER) [Concomitant]
     Route: 042
  6. CETIRIZINE (ALNOK) [Concomitant]
  7. INSULIN (INSULATARD) [Concomitant]
  8. PARACETAMOL (PINEX) [Concomitant]
  9. CLOPIDOGREL (PLAVIX) [Concomitant]
  10. CITALOPRAM (AKARIN) [Concomitant]
  11. FUROSEMIDE (FURIX) [Concomitant]
  12. PANTOPRAZOLE (PANTOLOC) [Concomitant]
  13. SIMVASTATIN [Concomitant]
  14. ZOPICLONE (IMOCLONE) [Concomitant]
  15. GLYCERYL TRINITRATE [Concomitant]
  16. ISOSORBIDE MONONITRATE (ISODUR) [Concomitant]
  17. ACETYLSALICYLIC ACID (MAGNYL) [Concomitant]
  18. MIRTAZAPINE [Concomitant]
  19. INSULIN HUMAN (ACTRAPID PEN) [Concomitant]
  20. NULYTEY (MOVICOL) [Concomitant]
  21. NITROGLYCERIN [Concomitant]

REACTIONS (1)
  - Nephrogenic systemic fibrosis [Not Recovered/Not Resolved]
